FAERS Safety Report 10168954 (Version 1)
Quarter: 2014Q2

REPORT INFORMATION
  Report Type: Spontaneous
  Country: US (occurrence: US)
  Receive Date: 20140513
  Receipt Date: 20140513
  Transmission Date: 20141212
  Serious: No
  Sender: FDA-Public Use
  Company Number: US-BAYER-2014-069375

PATIENT
  Age: 34 Year
  Sex: Female

DRUGS (4)
  1. ADEMPAS [Suspect]
     Indication: PULMONARY ARTERIAL HYPERTENSION
     Dosage: UNK
     Route: 048
  2. REMODULIN [Suspect]
     Indication: PULMONARY ARTERIAL HYPERTENSION
     Dosage: .107 UG/KG/MIN (0.107 UG/KG, 1 IN 1 MIN)
     Route: 042
     Dates: start: 20071008
  3. COUMADIN [Concomitant]
  4. LETAIRIS [Concomitant]

REACTIONS (2)
  - Irritability [Not Recovered/Not Resolved]
  - Oedema [Not Recovered/Not Resolved]
